FAERS Safety Report 22338740 (Version 1)
Quarter: 2023Q2

REPORT INFORMATION
  Report Type: Spontaneous
  Country: NL (occurrence: NL)
  Receive Date: 20230518
  Receipt Date: 20230518
  Transmission Date: 20230721
  Serious: Yes (Hospitalization, Other)
  Sender: FDA-Public Use
  Company Number: NL-SUN PHARMACEUTICAL INDUSTRIES LTD-2023R1-387515

PATIENT
  Age: 49 Year
  Sex: Male

DRUGS (7)
  1. MEROPENEM [Suspect]
     Active Substance: MEROPENEM
     Indication: Prostatitis
     Dosage: UNK
     Route: 065
  2. ACYCLOVIR [Interacting]
     Active Substance: ACYCLOVIR
     Indication: Herpes zoster
     Dosage: 1000 MILLIGRAM, BID
     Route: 048
  3. ACYCLOVIR [Interacting]
     Active Substance: ACYCLOVIR
     Dosage: 1000 MILLIGRAM, TID
     Route: 048
  4. ACYCLOVIR [Interacting]
     Active Substance: ACYCLOVIR
     Dosage: 500 MILLIGRAM, TID
     Route: 048
  5. MYCOPHENOLATE MOFETIL [Suspect]
     Active Substance: MYCOPHENOLATE MOFETIL
     Indication: Prophylaxis against transplant rejection
     Dosage: 750 MILLIGRAM, BID
     Route: 065
  6. VALACYCLOVIR HYDROCHLORIDE [Suspect]
     Active Substance: VALACYCLOVIR HYDROCHLORIDE
     Indication: Herpes zoster
     Dosage: 1000 MILLIGRAM, BID
     Route: 048
  7. VALACYCLOVIR HYDROCHLORIDE [Suspect]
     Active Substance: VALACYCLOVIR HYDROCHLORIDE
     Dosage: 500 MILLIGRAM, TID
     Route: 048

REACTIONS (2)
  - Drug interaction [Unknown]
  - Drug level increased [Unknown]
